FAERS Safety Report 5976575-8 (Version None)
Quarter: 2008Q4

REPORT INFORMATION
  Report Type: 
  Country: None (occurrence: None)
  Receive Date: 20081202
  Receipt Date: 20081121
  Transmission Date: 20090506
  Serious: Yes (Other)
  Sender: FDA-Public Use
  Company Number: US-JNJCH-2008019844

PATIENT
  Age: 69 Year
  Sex: Female
  Weight: 58.5 kg

DRUGS (1)
  1. ROGAINE [Suspect]
     Indication: ALOPECIA
     Dosage: TEXT:1/2 CAP TWICE DAILY
     Route: 061

REACTIONS (6)
  - BLISTER [None]
  - ERYTHEMA [None]
  - INSOMNIA [None]
  - PAIN [None]
  - PRURITUS [None]
  - SCAB [None]
